FAERS Safety Report 6333239-9 (Version None)
Quarter: 2009Q3

REPORT INFORMATION
  Report Type: 
  Country: None (occurrence: None)
  Receive Date: 20090828
  Receipt Date: 20090814
  Transmission Date: 20100115
  Serious: No
  Sender: FDA-Public Use
  Company Number: FR-MYLANLABS-2009S1014485

PATIENT
  Age: 13 Year
  Sex: Female

DRUGS (6)
  1. METHOTREXATE MERCK [Suspect]
     Indication: PRECURSOR T-LYMPHOBLASTIC LYMPHOMA/LEUKAEMIA
     Route: 042
     Dates: start: 20090708, end: 20090708
  2. METHOTREXATE MERCK [Suspect]
     Route: 037
     Dates: start: 20090709, end: 20090709
  3. PURINETHOL [Concomitant]
  4. ZOPHREN [Concomitant]
  5. PLITICAN [Concomitant]
  6. ATARAX [Concomitant]

REACTIONS (3)
  - APHTHOUS STOMATITIS [None]
  - DRUG LEVEL INCREASED [None]
  - RASH PRURITIC [None]
